FAERS Safety Report 6727806-8 (Version None)
Quarter: 2010Q2

REPORT INFORMATION
  Report Type: 
  Country: None (occurrence: None)
  Receive Date: 20100514
  Receipt Date: 20100514
  Transmission Date: 20101027
  Serious: Yes (Other)
  Sender: FDA-Public Use
  Company Number: None

PATIENT
  Age: 50 Year
  Sex: Male

DRUGS (1)
  1. OMEPRAZOLE [Suspect]
     Indication: GASTRIC PH
     Dosage: TAKE 1 CAPSULE ONCE DAILY
     Dates: start: 20100320

REACTIONS (2)
  - DRUG INEFFECTIVE [None]
  - GASTRIC PH DECREASED [None]
